FAERS Safety Report 7983069-7 (Version None)
Quarter: 2011Q4

REPORT INFORMATION
  Report Type: 
  Country: None (occurrence: None)
  Receive Date: 20111215
  Receipt Date: 20111202
  Transmission Date: 20120403
  Serious: Yes (Life-Threatening)
  Sender: FDA-Public Use
  Company Number: GB-MYLANLABS-2011S1024979

PATIENT
  Age: 92 Year
  Sex: Male
  Weight: 61.7 kg

DRUGS (26)
  1. TAMSULOSIN HCL [Suspect]
     Indication: BLADDER OBSTRUCTION
     Route: 048
     Dates: start: 20111118
  2. MILK THISTLE /01131701/ [Concomitant]
     Indication: PRODUCT USED FOR UNKNOWN INDICATION
  3. MULTI-VITAMIN [Concomitant]
     Indication: PRODUCT USED FOR UNKNOWN INDICATION
  4. ASTRAGALUS /02610401/ [Concomitant]
     Indication: PRODUCT USED FOR UNKNOWN INDICATION
  5. CORN SILK [Concomitant]
     Indication: PRODUCT USED FOR UNKNOWN INDICATION
  6. YARROW [Concomitant]
     Indication: PRODUCT USED FOR UNKNOWN INDICATION
  7. CHEMOTHERAPEUTICS [Concomitant]
     Dates: start: 20110601
  8. CHEMOTHERAPEUTICS [Concomitant]
     Dates: start: 20110601
  9. LEVOTHYROXINE SODIUM [Concomitant]
     Indication: PRODUCT USED FOR UNKNOWN INDICATION
  10. ERYTHROMYCIN [Concomitant]
     Indication: BRONCHITIS
  11. GINGER [Concomitant]
     Indication: PRODUCT USED FOR UNKNOWN INDICATION
  12. CLIVERS [Concomitant]
     Indication: PRODUCT USED FOR UNKNOWN INDICATION
  13. A.VOGEL ECHINACEA /01323506/ [Concomitant]
     Indication: PRODUCT USED FOR UNKNOWN INDICATION
  14. CHEMOTHERAPEUTICS [Concomitant]
     Dates: start: 20110601
  15. CHEMOTHERAPEUTICS [Concomitant]
     Dates: start: 20110601
  16. GOLDEN SEAL /01446501/ [Concomitant]
     Indication: PRODUCT USED FOR UNKNOWN INDICATION
  17. HORSETAIL [Concomitant]
     Indication: PRODUCT USED FOR UNKNOWN INDICATION
  18. CHEMOTHERAPEUTICS [Concomitant]
     Indication: HODGKIN'S DISEASE
     Dates: start: 20110601
  19. CHEMOTHERAPEUTICS [Concomitant]
     Dates: start: 20110601
  20. BEE POLLEN [Concomitant]
     Indication: PRODUCT USED FOR UNKNOWN INDICATION
  21. HAWTHORN BERRIES [Concomitant]
     Indication: PRODUCT USED FOR UNKNOWN INDICATION
  22. SAW PALMETTO [Concomitant]
     Indication: PRODUCT USED FOR UNKNOWN INDICATION
  23. CHEMOTHERAPEUTICS [Concomitant]
     Dates: start: 20110601
  24. BURDOCK /05455401/ [Concomitant]
     Indication: PRODUCT USED FOR UNKNOWN INDICATION
  25. ERYTHROMYCIN [Concomitant]
     Indication: URINARY TRACT INFECTION
  26. HORSERADISH [Concomitant]
     Indication: PRODUCT USED FOR UNKNOWN INDICATION

REACTIONS (2)
  - INCONTINENCE [None]
  - CARDIAC DISORDER [None]
